FAERS Safety Report 19226536 (Version 1)
Quarter: 2021Q2

REPORT INFORMATION
  Report Type: Report from Study
  Country: RU (occurrence: RU)
  Receive Date: 20210506
  Receipt Date: 20210506
  Transmission Date: 20210717
  Serious: Yes (Other)
  Sender: FDA-Public Use
  Company Number: RU-GLAXOSMITHKLINE-RUCH2021EME025473

PATIENT
  Age: 60 Year
  Sex: Male

DRUGS (2)
  1. DICLOFENAC [Suspect]
     Active Substance: DICLOFENAC
     Indication: ARTHRALGIA
  2. DICLOFENAC [Suspect]
     Active Substance: DICLOFENAC
     Indication: PAIN
     Dosage: UNK

REACTIONS (1)
  - Dependence [Recovered/Resolved]
